FAERS Safety Report 5430428-2 (Version None)
Quarter: 2007Q3

REPORT INFORMATION
  Report Type: 
  Country: None (occurrence: None)
  Receive Date: 20070731
  Receipt Date: 20070507
  Transmission Date: 20080115
  Serious: No
  Sender: FDA-Public Use
  Company Number: US200705002157

PATIENT
  Age: 81 Year
  Sex: Female

DRUGS (5)
  1. BYETTA [Suspect]
     Dosage: 5 UG, DAILY (1/D),  SUBCUTANEOUS
     Route: 058
     Dates: start: 20070409, end: 20070505
  2. BYETTA [Suspect]
     Dosage: 5 UG, DAILY (1/D),  SUBCUTANEOUS
     Route: 058
     Dates: start: 20070506
  3. GLYBURIDE [Concomitant]
  4. METFORMIN HCL [Concomitant]
  5. COUMADIN [Concomitant]

REACTIONS (3)
  - BLOOD GLUCOSE FLUCTUATION [None]
  - BLOOD GLUCOSE INCREASED [None]
  - FEELING COLD [None]
